FAERS Safety Report 10548795 (Version 1)
Quarter: 2014Q4

REPORT INFORMATION
  Report Type: Spontaneous
  Country: US (occurrence: None)
  Receive Date: 20141027
  Receipt Date: 20141027
  Transmission Date: 20150529
  Serious: Yes (Hospitalization)
  Sender: FDA-Public Use
  Company Number: None

PATIENT
  Age: 70 Year
  Sex: Male
  Weight: 54.43 kg

DRUGS (11)
  1. TRAMADOL [Concomitant]
     Active Substance: TRAMADOL
  2. ISONIAZID. [Suspect]
     Active Substance: ISONIAZID
     Indication: EXTRAPULMONARY TUBERCULOSIS
     Dosage: 900 MG/3 PILLS QD ORAL
     Route: 048
     Dates: start: 20140724, end: 20140801
  3. ETHAMBUTOL [Concomitant]
     Active Substance: ETHAMBUTOL HYDROCHLORIDE
  4. RANITIDINE [Concomitant]
     Active Substance: RANITIDINE\RANITIDINE HYDROCHLORIDE
  5. TAMSUOLOSIN [Concomitant]
  6. OMEPRAZOLE. [Concomitant]
     Active Substance: OMEPRAZOLE
  7. PYRAZINAMIDE. [Concomitant]
     Active Substance: PYRAZINAMIDE
  8. MOXIFLOXACIN [Concomitant]
     Active Substance: MOXIFLOXACIN
  9. RIFAMPIN. [Concomitant]
     Active Substance: RIFAMPIN
  10. PANTOPRAZOLE [Concomitant]
     Active Substance: PANTOPRAZOLE SODIUM
  11. ONDANSETRON [Concomitant]
     Active Substance: ONDANSETRON

REACTIONS (2)
  - Liver function test abnormal [None]
  - Prescribed overdose [None]

NARRATIVE: CASE EVENT DATE: 20140725
